FAERS Safety Report 15412940 (Version 1)
Quarter: 2018Q3

REPORT INFORMATION
  Report Type: Spontaneous
  Country: ES (occurrence: ES)
  Receive Date: 20180921
  Receipt Date: 20180921
  Transmission Date: 20181010
  Serious: Yes (Other)
  Sender: FDA-Public Use
  Company Number: ES-BAUSCH-BL-2018-025516

PATIENT
  Age: 45 Year
  Sex: Female

DRUGS (4)
  1. INSULIN GLARGINE [Suspect]
     Active Substance: INSULIN GLARGINE
     Indication: TYPE 2 DIABETES MELLITUS
     Route: 058
     Dates: start: 20170329
  2. METFORMIN HYDROCHLORIDE. [Suspect]
     Active Substance: METFORMIN HYDROCHLORIDE
     Indication: TYPE 2 DIABETES MELLITUS
     Route: 048
  3. ZOMARIST [Suspect]
     Active Substance: VILDAGLIPTIN
     Indication: TYPE 2 DIABETES MELLITUS
     Route: 048
  4. HUMALOG [Concomitant]
     Active Substance: INSULIN LISPRO
     Indication: TYPE 2 DIABETES MELLITUS
     Dosage: 24 U, TID; 24 DOSAGE IN 8 HOURS
     Route: 058

REACTIONS (7)
  - Impulsive behaviour [Recovering/Resolving]
  - Peripheral swelling [Not Recovered/Not Resolved]
  - Blood glucose increased [Recovering/Resolving]
  - Fluid retention [Unknown]
  - Hypercoagulation [Unknown]
  - Sciatica [Not Recovered/Not Resolved]
  - Diarrhoea [Recovered/Resolved]
